FAERS Safety Report 13721825 (Version 1)
Quarter: 2017Q3

REPORT INFORMATION
  Report Type: Spontaneous
  Country: CA (occurrence: CA)
  Receive Date: 20170706
  Receipt Date: 20170706
  Transmission Date: 20171127
  Serious: Yes (Other)
  Sender: FDA-Public Use
  Company Number: PHHY2017CA093344

PATIENT
  Age: 7 Day
  Sex: Male

DRUGS (3)
  1. INDOMETHACIN. [Suspect]
     Active Substance: INDOMETHACIN
     Indication: PATENT DUCTUS ARTERIOSUS
     Dosage: FIRST DOSE
     Route: 065
  2. INDOMETHACIN. [Suspect]
     Active Substance: INDOMETHACIN
     Dosage: SECOND DOSE
     Route: 065
  3. INDOMETHACIN. [Suspect]
     Active Substance: INDOMETHACIN
     Dosage: THIRD DOSE
     Route: 065

REACTIONS (5)
  - Respiratory distress [Recovered/Resolved]
  - Hypotension [Recovered/Resolved]
  - Coarctation of the aorta [Recovered/Resolved]
  - Pulse abnormal [Recovered/Resolved]
  - Systolic dysfunction [Recovered/Resolved]
